FAERS Safety Report 15947227 (Version 2)
Quarter: 2019Q2

REPORT INFORMATION
  Report Type: Spontaneous
  Country: US (occurrence: US)
  Receive Date: 20190211
  Receipt Date: 20190417
  Transmission Date: 20190711
  Serious: No
  Sender: FDA-Public Use
  Company Number: US-PFIZER INC-2019053600

PATIENT
  Age: 41 Year
  Sex: Female
  Weight: 58.97 kg

DRUGS (2)
  1. GABAPENTIN. [Suspect]
     Active Substance: GABAPENTIN
     Indication: MULTIPLE SCLEROSIS
     Dosage: 1800 MG, ONCE A DAY
     Route: 048
     Dates: start: 201806
  2. GABAPENTIN. [Suspect]
     Active Substance: GABAPENTIN
     Dosage: 300 MG, THREE TIMES A DAY
     Route: 048
     Dates: start: 2018

REACTIONS (4)
  - Therapeutic response unexpected [Unknown]
  - Pre-existing condition improved [Unknown]
  - Peripheral swelling [Recovering/Resolving]
  - Product use in unapproved indication [Unknown]

NARRATIVE: CASE EVENT DATE: 201806
